FAERS Safety Report 9120128 (Version 1)
Quarter: 2013Q1

REPORT INFORMATION
  Report Type: Spontaneous
  Country: US (occurrence: US)
  Receive Date: 20130226
  Receipt Date: 20130226
  Transmission Date: 20140127
  Serious: No
  Sender: FDA-Public Use
  Company Number: US-009507513-1302USA012218

PATIENT
  Sex: Male

DRUGS (1)
  1. CORICIDIN HBP FLU [Suspect]
     Indication: EUPHORIC MOOD
     Dosage: UNK, UNKNOWN
     Route: 048

REACTIONS (4)
  - Dependence [Unknown]
  - Euphoric mood [Unknown]
  - Overdose [Unknown]
  - Off label use [Unknown]
